FAERS Safety Report 8454201-6 (Version None)
Quarter: 2012Q2

REPORT INFORMATION
  Report Type: 
  Country: None (occurrence: None)
  Receive Date: 20120620
  Receipt Date: 20120618
  Transmission Date: 20120825
  Serious: Yes (Death, Hospitalization)
  Sender: FDA-Public Use
  Company Number: IN-ROCHE-792490

PATIENT
  Sex: Female
  Weight: 78 kg

DRUGS (3)
  1. PYRIDOXINE HCL [Concomitant]
     Dates: start: 20091116, end: 20091116
  2. CALCIMAX D3 [Concomitant]
     Dates: start: 20100617, end: 20100629
  3. XELODA [Suspect]
     Indication: BREAST CANCER
     Dosage: CYCLICAL, FILM COATED TABLET (CYCLE 1-11), 1250 MG/M2 TWICE DAILY) FROM D1 TO D14 EVERY 3 WEEKS
     Route: 048
     Dates: start: 20091116, end: 20100617

REACTIONS (1)
  - CEREBROVASCULAR ACCIDENT [None]
